FAERS Safety Report 9361080 (Version 2)
Quarter: 2013Q3

REPORT INFORMATION
  Report Type: Spontaneous
  Country: US (occurrence: US)
  Receive Date: 20130621
  Receipt Date: 20130708
  Transmission Date: 20140515
  Serious: No
  Sender: FDA-Public Use
  Company Number: US-PFIZER INC-2013181524

PATIENT
  Age: 48 Year
  Sex: Female

DRUGS (7)
  1. FLAGYL [Suspect]
     Dosage: UNK
  2. KEFLEX [Suspect]
     Dosage: UNK
  3. BACTRIM [Suspect]
     Indication: ABDOMINAL PAIN
     Dosage: UNK, BID
     Route: 048
     Dates: start: 20130415, end: 20130419
  4. BACTRIM [Suspect]
     Indication: PELVIC PAIN
  5. BACTRIM [Suspect]
     Indication: HAEMATURIA
  6. AMOXYCILLIN [Suspect]
     Dosage: UNK
  7. CEPHALEXIN [Suspect]
     Dosage: UNK

REACTIONS (1)
  - Drug hypersensitivity [Unknown]
